FAERS Safety Report 10045447 (Version 2)
Quarter: 2014Q2

REPORT INFORMATION
  Report Type: Spontaneous
  Country: US (occurrence: US)
  Receive Date: 20140328
  Receipt Date: 20140408
  Transmission Date: 20141212
  Serious: Yes (Other)
  Sender: FDA-Public Use
  Company Number: CHPA2014US004441

PATIENT
  Age: 99 Year
  Sex: Male

DRUGS (3)
  1. VOLTAREN GEL [Suspect]
     Indication: BACK PAIN
     Dosage: UNK
     Route: 061
     Dates: end: 20140325
  2. VOLTAREN GEL [Suspect]
     Indication: OFF LABEL USE
  3. VOLTAREN GEL [Suspect]
     Indication: OFF LABEL USE

REACTIONS (4)
  - Diplopia [Recovered/Resolved]
  - Deafness [Not Recovered/Not Resolved]
  - Macular degeneration [Recovered/Resolved]
  - Vision blurred [Recovered/Resolved]
